FAERS Safety Report 4823338-2 (Version None)
Quarter: 2005Q4

REPORT INFORMATION
  Report Type: 
  Country: None (occurrence: None)
  Receive Date: 20051107
  Receipt Date: 20051024
  Transmission Date: 20060501
  Serious: Yes (Hospitalization)
  Sender: FDA-Public Use
  Company Number: 2005BH002465

PATIENT
  Age: 48 Year
  Sex: Male

DRUGS (4)
  1. CHLORPROMAZINE [Suspect]
     Indication: SCHIZOPHRENIA
     Dosage: 650 MG;AT BEDTIME
  2. BENZHEXOL [Concomitant]
  3. ZUCLOPENTHIXOL [Concomitant]
  4. DECANOATE [Concomitant]

REACTIONS (2)
  - HEAT EXHAUSTION [None]
  - HEAT STROKE [None]
